FAERS Safety Report 25083744 (Version 1)
Quarter: 2025Q1

REPORT INFORMATION
  Report Type: Spontaneous
  Country: US (occurrence: None)
  Receive Date: 20250314
  Receipt Date: 20250314
  Transmission Date: 20250409
  Serious: Yes (Death)
  Sender: FDA-CTU
  Company Number: None

PATIENT
  Sex: Female

DRUGS (10)
  1. GLATIRAMER [Suspect]
     Active Substance: GLATIRAMER
     Indication: Multiple sclerosis
     Dosage: FREQUENCY : 3 TIMES A DAY;?
     Route: 058
     Dates: start: 20171017
  2. APAP/CODEINE TAB 300-30MG [Concomitant]
  3. BACLOFEN [Concomitant]
     Active Substance: BACLOFEN
  4. COPAXONE [Concomitant]
     Active Substance: GLATIRAMER ACETATE
  5. GABAPENTIN [Concomitant]
     Active Substance: GABAPENTIN
  6. LEVOTHYROXIN TAB 50MCG [Concomitant]
  7. LEVOTHYROXIN TAB 75MCG [Concomitant]
  8. MIDODRINE TAB 10MG [Concomitant]
  9. NEURONTIN TAB BOOMG [Concomitant]
  10. NORTRIPTYLIN CAP 1OMG [Concomitant]

REACTIONS (1)
  - Death [None]
